FAERS Safety Report 11234217 (Version 1)
Quarter: 2015Q3

REPORT INFORMATION
  Report Type: Spontaneous
  Country: US (occurrence: US)
  Receive Date: 20150702
  Receipt Date: 20150702
  Transmission Date: 20151125
  Serious: Yes (Hospitalization, Other)
  Sender: FDA-Public Use
  Company Number: US-JNJFOC-20150619108

PATIENT
  Age: 9 Decade
  Sex: Female

DRUGS (3)
  1. SOTALOL. [Concomitant]
     Active Substance: SOTALOL
     Indication: ARRHYTHMIA
     Route: 065
  2. XARELTO [Suspect]
     Active Substance: RIVAROXABAN
     Indication: CEREBROVASCULAR ACCIDENT PROPHYLAXIS
     Route: 048
     Dates: start: 2012, end: 20150621
  3. XARELTO [Suspect]
     Active Substance: RIVAROXABAN
     Indication: ATRIAL FIBRILLATION
     Route: 048
     Dates: start: 2012, end: 20150621

REACTIONS (9)
  - Mastication disorder [Unknown]
  - Pneumonia [Not Recovered/Not Resolved]
  - Atrial flutter [Unknown]
  - International normalised ratio increased [Recovered/Resolved]
  - Abasia [Unknown]
  - Echocardiogram abnormal [Unknown]
  - Prothrombin time prolonged [Recovered/Resolved]
  - Pneumonia [Unknown]
  - Activated partial thromboplastin time prolonged [Recovered/Resolved]

NARRATIVE: CASE EVENT DATE: 201505
